FAERS Safety Report 22355485 (Version 1)
Quarter: 2023Q2

REPORT INFORMATION
  Report Type: Spontaneous
  Country: US (occurrence: US)
  Receive Date: 20230523
  Receipt Date: 20230523
  Transmission Date: 20230721
  Serious: No
  Sender: FDA-Public Use
  Company Number: US-PFIZER INC-202300195797

PATIENT
  Age: 61 Year
  Sex: Female
  Weight: 83.91 kg

DRUGS (3)
  1. PAXLOVID [Suspect]
     Active Substance: NIRMATRELVIR\RITONAVIR
     Indication: COVID-19 treatment
     Dosage: PF-07321332 300 MG/RITONAVIR 100 MG; 2X/DAY
     Dates: start: 20230516
  2. CRESTOR [Concomitant]
     Active Substance: ROSUVASTATIN CALCIUM
     Indication: Blood cholesterol
     Dosage: 10 MG, 1X/DAY
  3. ATENOLOL [Concomitant]
     Active Substance: ATENOLOL
     Indication: Hypertension
     Dosage: 25 MG, 1X/DAY

REACTIONS (11)
  - Illness [Unknown]
  - Oropharyngeal pain [Not Recovered/Not Resolved]
  - Dysphonia [Not Recovered/Not Resolved]
  - Diarrhoea [Unknown]
  - Abdominal pain [Unknown]
  - Nausea [Unknown]
  - Myalgia [Not Recovered/Not Resolved]
  - Pain [Not Recovered/Not Resolved]
  - Decreased appetite [Unknown]
  - Eating disorder [Unknown]
  - Fall [Unknown]

NARRATIVE: CASE EVENT DATE: 20230517
